FAERS Safety Report 19891535 (Version 2)
Quarter: 2021Q4

REPORT INFORMATION
  Report Type: Spontaneous
  Country: NL (occurrence: NL)
  Receive Date: 20210928
  Receipt Date: 20211022
  Transmission Date: 20220303
  Serious: Yes (Life-Threatening, Other)
  Sender: FDA-Public Use
  Company Number: None

PATIENT
  Age: 85 Year
  Sex: Female

DRUGS (16)
  1. SIMVASTATIN [Interacting]
     Active Substance: SIMVASTATIN
     Indication: Myocardial infarction
     Dosage: 1 PER DAY
     Dates: start: 20210805, end: 20210906
  2. MICONAZOLE [Suspect]
     Active Substance: MICONAZOLE
     Indication: Oral fungal infection
     Dosage: GEL, 20 MG/G (MILLIGRAM PER GRAM), AFTER START MICRONAZOL ORAL DAILY 2 9 MUSCLE WEAKNESS DEVELOPED A
     Route: 048
     Dates: start: 20210902
  3. PANTOPRAZOLE SODIUM [Concomitant]
     Active Substance: PANTOPRAZOLE SODIUM
     Dosage: 1 DD 1
     Route: 048
  4. SPIRONOLACTONE [Concomitant]
     Active Substance: SPIRONOLACTONE
     Dosage: 1 DD 0.5
     Route: 048
  5. ELIQUIS [Concomitant]
     Active Substance: APIXABAN
     Dosage: 2 DD 1
     Route: 048
  6. CALCIUM CARBONATE\CHOLECALCIFEROL [Concomitant]
     Active Substance: CALCIUM CARBONATE\CHOLECALCIFEROL
     Dosage: 1DD17(2) ST
     Route: 048
  7. METFORMIN [Concomitant]
     Active Substance: METFORMIN HYDROCHLORIDE
     Dosage: 2 DD 1
     Route: 048
  8. NITROGLYCERINE TEVA [Concomitant]
     Dosage: ZN (1) DO, SUBLINGUAL
     Route: 060
  9. CARVEDILOL [Concomitant]
     Active Substance: CARVEDILOL
     Dosage: 2 DD 1
     Route: 048
  10. ZOLEDRONIC ACID [Concomitant]
     Active Substance: ZOLEDRONIC ACID
     Dosage: UNK
     Route: 042
  11. CLOPIDOGREL [Concomitant]
     Active Substance: CLOPIDOGREL BISULFATE
     Dosage: 1 DD 1
     Route: 048
     Dates: start: 20210823
  12. PERINDOPRIL [Concomitant]
     Active Substance: PERINDOPRIL
     Dosage: 1 DD 2
     Route: 048
  13. LANOXIN [Concomitant]
     Active Substance: DIGOXIN
     Dosage: 1 DD 1
     Route: 048
  14. LETROZOLE [Concomitant]
     Active Substance: LETROZOLE
     Dosage: 1 DD 1
     Route: 048
  15. ASPIRIN [Concomitant]
     Active Substance: ASPIRIN
     Dosage: 1 DD 1
     Route: 048
     Dates: start: 20210823, end: 20210920
  16. ISOSORBIDE MONONITRATE [Concomitant]
     Active Substance: ISOSORBIDE MONONITRATE
     Dosage: 1 DD 1
     Route: 048

REACTIONS (5)
  - Muscular weakness [Recovered/Resolved]
  - Blood creatine phosphokinase increased [Recovered/Resolved]
  - Rhabdomyolysis [Recovered/Resolved]
  - Myalgia [Recovered/Resolved]
  - Drug interaction [Recovered/Resolved]

NARRATIVE: CASE EVENT DATE: 20210906
